FAERS Safety Report 4713911-4 (Version None)
Quarter: 2005Q3

REPORT INFORMATION
  Report Type: 
  Country: None (occurrence: None)
  Receive Date: 20050713
  Receipt Date: 20050701
  Transmission Date: 20060218
  Serious: Yes (Hospitalization, Other)
  Sender: FDA-Public Use
  Company Number: S05-USA-01947-01

PATIENT
  Age: 36 Year
  Sex: Male

DRUGS (5)
  1. LEXAPRO [Suspect]
     Indication: DYSTHYMIC DISORDER
     Dosage: 10 MG QD PO
     Route: 048
     Dates: start: 20040806, end: 20040801
  2. LEXAPRO [Suspect]
     Indication: GENERALISED ANXIETY DISORDER
     Dosage: 10 MG QD PO
     Route: 048
     Dates: start: 20040806, end: 20040801
  3. LEXAPRO [Suspect]
     Indication: DYSTHYMIC DISORDER
     Dosage: 10 MG QD PO
     Route: 048
     Dates: start: 20040801, end: 20040827
  4. LEXAPRO [Suspect]
     Indication: GENERALISED ANXIETY DISORDER
     Dosage: 10 MG QD PO
     Route: 048
     Dates: start: 20040801, end: 20040827
  5. ALCOHOL [Suspect]
     Dates: start: 20040801, end: 20050301

REACTIONS (33)
  - AGITATION [None]
  - ALCOHOL INTERACTION [None]
  - ALCOHOLISM [None]
  - ANGER [None]
  - ANXIETY [None]
  - APATHY [None]
  - ATTENTION DEFICIT/HYPERACTIVITY DISORDER [None]
  - BIPOLAR DISORDER [None]
  - BORDERLINE PERSONALITY DISORDER [None]
  - DELUSION [None]
  - DIARRHOEA [None]
  - DRUG DEPENDENCE [None]
  - DRUG INEFFECTIVE [None]
  - DRUG TOXICITY [None]
  - ERECTILE DYSFUNCTION [None]
  - EXCITABILITY [None]
  - GENERALISED ANXIETY DISORDER [None]
  - HALLUCINATION [None]
  - HEADACHE [None]
  - HOMICIDAL IDEATION [None]
  - INSOMNIA [None]
  - IRRITABILITY [None]
  - JUDGEMENT IMPAIRED [None]
  - MALAISE [None]
  - MEMORY IMPAIRMENT [None]
  - MOOD SWINGS [None]
  - NERVOUSNESS [None]
  - RESTLESSNESS [None]
  - SEXUAL OFFENCE [None]
  - SLUGGISHNESS [None]
  - SOMNOLENCE [None]
  - SUICIDAL IDEATION [None]
  - TREATMENT NONCOMPLIANCE [None]
